FAERS Safety Report 5567378-7 (Version None)
Quarter: 2007Q4

REPORT INFORMATION
  Report Type: 
  Country: None (occurrence: None)
  Receive Date: 20071214
  Receipt Date: 20071128
  Transmission Date: 20080405
  Serious: Yes (Death, Life-Threatening, Other)
  Sender: FDA-Public Use
  Company Number: 2007US002622

PATIENT
  Age: 79 Year
  Sex: Male

DRUGS (2)
  1. AMBISOME [Suspect]
     Indication: BRONCHOPULMONARY ASPERGILLOSIS
     Dosage: 100 MG
     Dates: start: 20070801, end: 20070806
  2. SOLDEM 3A (SODIUM LACTATE, POTASSIUM CHLORIDE, CARBOHYDRATS NOS, SODIU [Concomitant]

REACTIONS (15)
  - ANAEMIA [None]
  - BACTERIA SPUTUM IDENTIFIED [None]
  - BETA HAEMOLYTIC STREPTOCOCCAL INFECTION [None]
  - BRONCHOPULMONARY ASPERGILLOSIS [None]
  - CARDIAC FAILURE [None]
  - CORYNEBACTERIUM INFECTION [None]
  - DISSEMINATED INTRAVASCULAR COAGULATION [None]
  - FUNGUS SPUTUM TEST POSITIVE [None]
  - HYPOALBUMINAEMIA [None]
  - INTERSTITIAL LUNG DISEASE [None]
  - PULMONARY EMBOLISM [None]
  - PULMONARY OEDEMA [None]
  - RESPIRATORY FAILURE [None]
  - STAPHYLOCOCCAL SEPSIS [None]
  - WHITE BLOOD CELL COUNT DECREASED [None]
